FAERS Safety Report 5391968-8 (Version None)
Quarter: 2007Q3

REPORT INFORMATION
  Report Type: 
  Country: None (occurrence: None)
  Receive Date: 20070720
  Receipt Date: 20070718
  Transmission Date: 20080115
  Serious: Yes (Life-Threatening)
  Sender: FDA-Public Use
  Company Number: PHBS2007JP08799

PATIENT
  Age: 75 Year
  Sex: Male

DRUGS (5)
  1. PARLODEL [Suspect]
     Indication: PARKINSON'S DISEASE
     Dosage: 2.5 MG/DAY
     Route: 048
     Dates: start: 20070509, end: 20070522
  2. CALSLOT [Concomitant]
     Indication: HYPERTENSION
     Dosage: 10 MG, UNK
     Route: 048
     Dates: start: 20030401, end: 20070522
  3. BISOPROLOL FUMARATE [Concomitant]
     Indication: HYPERTENSION
     Dosage: 5 MG, UNK
     Route: 048
     Dates: start: 20030401, end: 20070522
  4. MEXITIL [Concomitant]
     Indication: ARRHYTHMIA
     Dosage: 300 MG, UNK
     Route: 048
     Dates: start: 20030401, end: 20070522
  5. URINORM [Concomitant]
     Indication: HYPERURICAEMIA
     Dosage: 25 MG, UNK
     Route: 048
     Dates: start: 20030401, end: 20070522

REACTIONS (15)
  - ALANINE AMINOTRANSFERASE INCREASED [None]
  - ASPARTATE AMINOTRANSFERASE INCREASED [None]
  - BLOOD ALKALINE PHOSPHATASE INCREASED [None]
  - BLOOD CREATININE INCREASED [None]
  - BLOOD LACTATE DEHYDROGENASE INCREASED [None]
  - BLOOD UREA INCREASED [None]
  - GAMMA-GLUTAMYLTRANSFERASE INCREASED [None]
  - GENERAL PHYSICAL HEALTH DETERIORATION [None]
  - HAEMATOCRIT DECREASED [None]
  - HAEMOGLOBIN DECREASED [None]
  - HEPATIC ENCEPHALOPATHY [None]
  - HEPATITIS FULMINANT [None]
  - LYMPHOCYTE COUNT DECREASED [None]
  - PROTHROMBIN TIME PROLONGED [None]
  - RED BLOOD CELL COUNT DECREASED [None]
